FAERS Safety Report 14538986 (Version 1)
Quarter: 2018Q1

REPORT INFORMATION
  Report Type: Report from Study
  Country: BE (occurrence: BE)
  Receive Date: 20180216
  Receipt Date: 20180216
  Transmission Date: 20180509
  Serious: Yes (Hospitalization)
  Sender: FDA-Public Use
  Company Number: BE-BAUSCH-BL-2018-004202

PATIENT
  Age: 74 Year
  Sex: Female

DRUGS (7)
  1. LEUCOVORIN. [Suspect]
     Active Substance: LEUCOVORIN
     Indication: COLORECTAL CANCER METASTATIC
     Dosage: EVERY 0.5 WEEK
     Route: 042
     Dates: start: 20170823
  2. COVERSYL [Concomitant]
     Active Substance: PERINDOPRIL
     Indication: PRODUCT USED FOR UNKNOWN INDICATION
     Dates: start: 201611
  3. FLUOROURACIL. [Suspect]
     Active Substance: FLUOROURACIL
     Indication: COLORECTAL CANCER METASTATIC
     Dosage: EVERY 0.5 WEEK
     Route: 042
     Dates: start: 20170823
  4. TRAMADOL. [Concomitant]
     Active Substance: TRAMADOL
     Indication: PRODUCT USED FOR UNKNOWN INDICATION
     Dates: start: 201702
  5. PARACETAMOL [Concomitant]
     Active Substance: ACETAMINOPHEN
     Indication: PRODUCT USED FOR UNKNOWN INDICATION
     Dates: start: 201702
  6. AVASTIN [Suspect]
     Active Substance: BEVACIZUMAB
     Indication: COLORECTAL CANCER METASTATIC
     Dosage: EVERY 0.5 WEEK
     Route: 042
     Dates: start: 20170823
  7. IRINOTECAN HYDROCHLORIDE. [Suspect]
     Active Substance: IRINOTECAN HYDROCHLORIDE
     Indication: COLORECTAL CANCER METASTATIC
     Dosage: ADMINISTERED TWICE PER WEEK
     Route: 042
     Dates: start: 20170823

REACTIONS (6)
  - Diarrhoea [Not Recovered/Not Resolved]
  - Inappropriate schedule of drug administration [Unknown]
  - Lacrimation increased [Not Recovered/Not Resolved]
  - Gastrointestinal stoma complication [Recovered/Resolved]
  - Stomatitis [Not Recovered/Not Resolved]
  - Off label use [Unknown]

NARRATIVE: CASE EVENT DATE: 20170823
